FAERS Safety Report 4731342-8 (Version None)
Quarter: 2005Q3

REPORT INFORMATION
  Report Type: 
  Country: None (occurrence: None)
  Receive Date: 20050719
  Receipt Date: 20050222
  Transmission Date: 20060218
  Serious: Yes (Hospitalization)
  Sender: FDA-Public Use
  Company Number: 2005BI004139

PATIENT
  Age: 46 Year
  Sex: Female
  Weight: 90.2658 kg

DRUGS (10)
  1. AVONEX [Suspect]
     Indication: MULTIPLE SCLEROSIS
     Dosage: 30 UG;QW;IM
     Dates: start: 20040301, end: 20041101
  2. LEXAPRO [Concomitant]
  3. VALIUM [Concomitant]
  4. PROSOM [Concomitant]
  5. VITAMINS [Concomitant]
  6. ASPIRIN [Concomitant]
  7. NEXIUM [Concomitant]
  8. TOPAMAX [Concomitant]
  9. NEURONTIN [Concomitant]
  10. BACLOFEN [Concomitant]

REACTIONS (8)
  - ANTI-THYROID ANTIBODY POSITIVE [None]
  - BLOOD CHOLESTEROL INCREASED [None]
  - BLOOD IMMUNOGLOBULIN M INCREASED [None]
  - FALL [None]
  - FOOT FRACTURE [None]
  - MAJOR DEPRESSION [None]
  - VOMITING [None]
  - WEIGHT DECREASED [None]
